FAERS Safety Report 8558273 (Version 2)
Quarter: 2013Q2

REPORT INFORMATION
  Report Type: Spontaneous
  Country: US (occurrence: US)
  Receive Date: 20120511
  Receipt Date: 20130510
  Transmission Date: 20140414
  Serious: No
  Sender: FDA-Public Use
  Company Number: US-GLAXOSMITHKLINE-A0953768A

PATIENT
  Age: 61 Year
  Sex: Female

DRUGS (5)
  1. TYKERB [Suspect]
     Indication: BREAST CANCER
     Dosage: 1250MG PER DAY
     Route: 048
  2. LAMOTRIGINE [Concomitant]
  3. XGEVA [Concomitant]
  4. ARMOUR THYROID [Concomitant]
  5. LEVOXYL [Concomitant]

REACTIONS (6)
  - Stomatitis [Unknown]
  - Skin ulcer [Unknown]
  - Conjunctival ulcer [Unknown]
  - Diarrhoea [Unknown]
  - Fatigue [Unknown]
  - Urine flow decreased [Not Recovered/Not Resolved]
